FAERS Safety Report 14998095 (Version 4)
Quarter: 2018Q3

REPORT INFORMATION
  Report Type: Spontaneous
  Country: BR (occurrence: BR)
  Receive Date: 20180611
  Receipt Date: 20180813
  Transmission Date: 20181010
  Serious: Yes (Other)
  Sender: FDA-Public Use
  Company Number: BR-B.I. PHARMACEUTICALS,INC./RIDGEFIELD-2018-BI-030409

PATIENT
  Age: 37 Year
  Sex: Male
  Weight: 94 kg

DRUGS (1)
  1. OMNI OCAS [Suspect]
     Active Substance: TAMSULOSIN HYDROCHLORIDE
     Indication: NEPHROLITHIASIS
     Route: 048
     Dates: start: 20180601, end: 201806

REACTIONS (6)
  - Muscular weakness [Recovered/Resolved]
  - Product friable [Unknown]
  - Off label use [Unknown]
  - Chills [Recovered/Resolved]
  - Myocardial infarction [Recovered/Resolved]
  - Product use in unapproved indication [Unknown]

NARRATIVE: CASE EVENT DATE: 20180601
